FAERS Safety Report 5132120-0 (Version None)
Quarter: 2006Q4

REPORT INFORMATION
  Report Type: 
  Country: None (occurrence: None)
  Receive Date: 20061017
  Receipt Date: 20060928
  Transmission Date: 20070319
  Serious: Yes (Hospitalization)
  Sender: FDA-Public Use
  Company Number: SP00883

PATIENT
  Age: 69 Year
  Sex: Male
  Weight: 95.2554 kg

DRUGS (3)
  1. COLAZAL [Suspect]
     Indication: COLITIS ULCERATIVE
     Dosage: 2250 MG/TID (750 MG), ORAL
     Route: 048
     Dates: start: 20060511, end: 20060605
  2. DIABETES MEDICATION [Concomitant]
  3. HYPERTENSION MEDICATION [Concomitant]

REACTIONS (4)
  - ATRIAL FIBRILLATION [None]
  - CHEST PAIN [None]
  - HEART RATE INCREASED [None]
  - TREMOR [None]
